FAERS Safety Report 7374081-X (Version None)
Quarter: 2011Q1

REPORT INFORMATION
  Report Type: 
  Country: None (occurrence: None)
  Receive Date: 20110325
  Receipt Date: 20110322
  Transmission Date: 20110831
  Serious: No
  Sender: FDA-Public Use
  Company Number: US-PFIZER INC-2011014752

PATIENT
  Age: 79 Year
  Sex: Female

DRUGS (1)
  1. NEURONTIN [Suspect]
     Dosage: 250/5 1 TSP OF AM AND 2 TSP HS
     Route: 048

REACTIONS (2)
  - PRODUCT TASTE ABNORMAL [None]
  - RETCHING [None]
